FAERS Safety Report 5573867-1 (Version None)
Quarter: 2007Q4

REPORT INFORMATION
  Report Type: 
  Country: None (occurrence: None)
  Receive Date: 20071226
  Receipt Date: 20071213
  Transmission Date: 20080405
  Serious: Yes (Other)
  Sender: FDA-Public Use
  Company Number: GB-RANBAXY-2007RR-12050

PATIENT

DRUGS (2)
  1. SERTRALINE HYDROCHLORIDE [Suspect]
     Dosage: 100 MG, QD
  2. IMPLANON [Suspect]
     Indication: CONTRACEPTION
     Dosage: UNK

REACTIONS (2)
  - DRUG INTERACTION [None]
  - ECTOPIC PREGNANCY [None]
